FAERS Safety Report 10035502 (Version 1)
Quarter: 2014Q1

REPORT INFORMATION
  Report Type: Spontaneous
  Country: US (occurrence: US)
  Receive Date: 20140325
  Receipt Date: 20140325
  Transmission Date: 20141002
  Serious: No
  Sender: FDA-Public Use
  Company Number: US-PFIZER INC-2014083149

PATIENT
  Sex: 0

DRUGS (2)
  1. ZOLOFT [Suspect]
     Indication: NEUROPSYCHIATRIC SYNDROME
     Dosage: 50 MG, UNK
  2. ZOLOFT [Suspect]
     Dosage: 25 MG, ALTERNATE DAY

REACTIONS (4)
  - Intentional drug misuse [Unknown]
  - Therapeutic response unexpected [Unknown]
  - Pre-existing condition improved [Unknown]
  - Drug intolerance [Unknown]
